FAERS Safety Report 9657804 (Version 1)
Quarter: 2013Q4

REPORT INFORMATION
  Report Type: Not Available
  Country: CA (occurrence: CA)
  Receive Date: 20131030
  Receipt Date: 20131030
  Transmission Date: 20140711
  Serious: Yes (Other)
  Sender: FDA-Public Use
  Company Number: CA-NAPPMUNDI-CAN-2013-0004527

PATIENT
  Age: 51 Year
  Sex: Male

DRUGS (2)
  1. HYDROMORPH CONTIN 12 MG [Suspect]
     Indication: PRODUCT USED FOR UNKNOWN INDICATION
     Dosage: 12 MG, BID
     Route: 048
  2. HYDROMORPHONE HCL [Suspect]
     Indication: PRODUCT USED FOR UNKNOWN INDICATION
     Dosage: 4 MG, QID
     Route: 048

REACTIONS (2)
  - Oedema peripheral [Unknown]
  - Pruritus [Unknown]
